FAERS Safety Report 4302108-8 (Version None)
Quarter: 2004Q1

REPORT INFORMATION
  Report Type: 
  Country: None (occurrence: None)
  Receive Date: 20040220
  Receipt Date: 20040213
  Transmission Date: 20041129
  Serious: Yes (Hospitalization)
  Sender: FDA-Public Use
  Company Number: K200400195

PATIENT
  Age: 83 Year
  Sex: Female

DRUGS (9)
  1. ALTACE [Suspect]
     Indication: CARDIAC DISORDER
     Dosage: 5 MG, QID, ORAL
     Route: 048
     Dates: start: 20010101
  2. GLUCOBAY (ACARBOSE) TABLET, 150MG [Suspect]
     Indication: DIABETES MELLITUS
     Dosage: 50 MG, TID, ORAL
     Route: 048
     Dates: end: 20030822
  3. CONCOR PLUS (BISOPROLOL FUMURATE, HYDROCHLOROTHIAZIDE) TABLET 0.5MG [Concomitant]
  4. GODAMED (ACETYLSALICYLIC ACID) TABLET, 100MG [Concomitant]
  5. LAXOBERAL ^BOEHRINGER  INGELHEIM^ (SODIUM PICOSULFATE) SOLUTION, 7.5 M [Concomitant]
  6. NITRANGIN (GLYCERYL TRINITRATE) CAPSULE, 0.2 MG [Concomitant]
  7. SORTIS ^PARKE-DAVIS^ (ATORVASTATIN CALCIUM) TABLET, 10 MG [Concomitant]
  8. UNAT (TORASEMIDE) TABLET, 10 MG [Concomitant]
  9. ZOLOFT (SERTRALINE HYDROCHLORIDE) TABLET, 50 MG [Concomitant]

REACTIONS (6)
  - ASTHENIA [None]
  - COUGH [None]
  - DRUG INTERACTION [None]
  - ELECTROLYTE IMBALANCE [None]
  - HAEMATOCRIT DECREASED [None]
  - HYPOGLYCAEMIA [None]
